FAERS Safety Report 6963757-1 (Version None)
Quarter: 2010Q3

REPORT INFORMATION
  Report Type: 
  Country: None (occurrence: None)
  Receive Date: 20100902
  Receipt Date: 20100830
  Transmission Date: 20110219
  Serious: Yes (Hospitalization, Other)
  Sender: FDA-Public Use
  Company Number: US-AMGEN-KDC429646

PATIENT
  Sex: Male
  Weight: 125.3 kg

DRUGS (9)
  1. DENOSUMAB [Suspect]
     Indication: METASTASES TO BONE
     Route: 058
     Dates: start: 20100324, end: 20100714
  2. DENOSUMAB - STUDY PROCEDURE [Suspect]
  3. ASCORBIC ACID [Concomitant]
     Route: 048
     Dates: end: 20100801
  4. FISH OIL [Concomitant]
     Dates: end: 20100801
  5. GOSERELIN [Concomitant]
     Route: 058
  6. TAXOTERE [Concomitant]
  7. PEGFILGRASTIM [Concomitant]
     Route: 058
     Dates: start: 20100722, end: 20100821
  8. ZOCOR [Concomitant]
     Route: 048
  9. TERAZOSIN HCL [Concomitant]
     Route: 048

REACTIONS (2)
  - INFECTION [None]
  - OSTEONECROSIS OF JAW [None]
